FAERS Safety Report 21095897 (Version 1)
Quarter: 2022Q3

REPORT INFORMATION
  Report Type: Spontaneous
  Country: US (occurrence: US)
  Receive Date: 20220718
  Receipt Date: 20220718
  Transmission Date: 20221027
  Serious: Yes (Disabling)
  Sender: FDA-Public Use
  Company Number: US-SANOFI-01186947

PATIENT
  Age: 51 Year
  Sex: Female

DRUGS (1)
  1. ADMELOG [Suspect]
     Active Substance: INSULIN LISPRO
     Indication: Type 2 diabetes mellitus
     Dosage: 5 UNITS 3X

REACTIONS (2)
  - Gait inability [Not Recovered/Not Resolved]
  - Road traffic accident [Unknown]
